FAERS Safety Report 11983596 (Version 2)
Quarter: 2016Q1

REPORT INFORMATION
  Report Type: Report from Study
  Country: US (occurrence: US)
  Receive Date: 20160201
  Receipt Date: 20160203
  Transmission Date: 20160526
  Serious: Yes (Hospitalization, Other)
  Sender: FDA-Public Use
  Company Number: US-JNJFOC-20160115482

PATIENT
  Age: 31 Year
  Sex: Female
  Weight: 90.8 kg

DRUGS (5)
  1. VENLAFAXINE [Suspect]
     Active Substance: VENLAFAXINE HYDROCHLORIDE
     Indication: PRODUCT USED FOR UNKNOWN INDICATION
     Dosage: 5-6 TIMES DAILY
     Route: 048
  2. TYLENOL [Suspect]
     Active Substance: ACETAMINOPHEN
     Route: 048
  3. TYLENOL [Suspect]
     Active Substance: ACETAMINOPHEN
     Indication: PRODUCT USED FOR UNKNOWN INDICATION
     Dosage: 3 TYLENOL EACH DAY OVER THE FOLLOWING 10 DAYS
     Route: 048
  4. ALPRAZOLAM. [Suspect]
     Active Substance: ALPRAZOLAM
     Indication: PRODUCT USED FOR UNKNOWN INDICATION
     Route: 048
  5. HYDROCODONE BITARTRATE AND ACETAMINOPHEN [Suspect]
     Active Substance: ACETAMINOPHEN\HYDROCODONE BITARTRATE
     Indication: PRODUCT USED FOR UNKNOWN INDICATION
     Dosage: 60 TABLETS OVER 6 DAYS
     Route: 048

REACTIONS (6)
  - Alanine aminotransferase increased [Unknown]
  - Drug abuse [Unknown]
  - Abdominal pain [Unknown]
  - Aspartate aminotransferase increased [Unknown]
  - Overdose [Unknown]
  - Fatigue [Unknown]

NARRATIVE: CASE EVENT DATE: 20150510
